FAERS Safety Report 8593739-8 (Version None)
Quarter: 2012Q3

REPORT INFORMATION
  Report Type: 
  Country: None (occurrence: None)
  Receive Date: 20120814
  Receipt Date: 20120809
  Transmission Date: 20120928
  Serious: Yes (Other)
  Sender: FDA-Public Use
  Company Number: JP-VERTEX PHARMACEUTICALS INC.-AE-2012-010479

PATIENT
  Age: 54 Year
  Sex: Male

DRUGS (8)
  1. RIBAVIRIN [Concomitant]
     Indication: HEPATITIS C
     Route: 048
     Dates: start: 20120703, end: 20120711
  2. PEGINTERFERON ALFA-2B [Concomitant]
     Indication: HEPATITIS C
     Route: 058
     Dates: start: 20120703
  3. TELAVIC [Suspect]
     Indication: HEPATITIS C
     Route: 048
     Dates: start: 20120703, end: 20120705
  4. PEGINTERFERON ALFA-2B [Concomitant]
     Route: 058
     Dates: start: 20120710, end: 20120731
  5. PEGINTERFERON ALFA-2B [Concomitant]
     Route: 058
     Dates: start: 20120807
  6. TELAVIC [Suspect]
     Route: 048
     Dates: start: 20120705, end: 20120711
  7. TELAVIC [Suspect]
     Route: 048
     Dates: start: 20120712
  8. RIBAVIRIN [Concomitant]
     Route: 048
     Dates: start: 20120712

REACTIONS (1)
  - LOSS OF CONSCIOUSNESS [None]
